FAERS Safety Report 24747491 (Version 1)
Quarter: 2024Q4

REPORT INFORMATION
  Report Type: Spontaneous
  Country: US (occurrence: US)
  Receive Date: 20241218
  Receipt Date: 20241218
  Transmission Date: 20250115
  Serious: Yes (Other)
  Sender: MERZ
  Company Number: US-MERZ PHARMACEUTICALS, LLC-ACO_176515_2024

PATIENT
  Sex: Male
  Weight: 74.83 kg

DRUGS (2)
  1. INBRIJA [Suspect]
     Active Substance: LEVODOPA
     Indication: Parkinson^s disease
     Dosage: 2 DOSAGE FORM, PRN (UP TO 4 TIMES DAILY)
     Dates: start: 20210414
  2. INBRIJA [Suspect]
     Active Substance: LEVODOPA
     Indication: On and off phenomenon

REACTIONS (11)
  - Waldenstrom^s macroglobulinaemia [Unknown]
  - Peripheral sensory neuropathy [Unknown]
  - Nerve injury [Unknown]
  - Hypoaesthesia [Unknown]
  - Condition aggravated [Unknown]
  - Parkinson^s disease [Unknown]
  - Product packaging difficult to open [Unknown]
  - Wrong technique in device usage process [Unknown]
  - Device difficult to use [Unknown]
  - Patient dissatisfaction with device [Unknown]
  - Treatment noncompliance [Unknown]
